FAERS Safety Report 15410476 (Version 1)
Quarter: 2018Q3

REPORT INFORMATION
  Report Type: Spontaneous
  Country: US (occurrence: US)
  Receive Date: 20180914
  Receipt Date: 20180914
  Transmission Date: 20181010
  Serious: Yes (Life-Threatening, Hospitalization, Other)
  Sender: FDA-Public Use
  Company Number: None

PATIENT
  Age: 41 Year
  Sex: Male
  Weight: 100 kg

DRUGS (2)
  1. NAPROXEN. [Concomitant]
     Active Substance: NAPROXEN
  2. SUMATRIPTAN. [Suspect]
     Active Substance: SUMATRIPTAN
     Indication: MIGRAINE
     Dosage: 6MG TID SQ INJ??TID OVER LAST  3 DAYS
     Route: 058

REACTIONS (4)
  - Vasospasm [None]
  - Acute myocardial infarction [None]
  - Cardiac arrest [None]
  - Intentional product use issue [None]

NARRATIVE: CASE EVENT DATE: 20180913
